FAERS Safety Report 8554952-9 (Version None)
Quarter: 2012Q3

REPORT INFORMATION
  Report Type: 
  Country: None (occurrence: None)
  Receive Date: 20120731
  Receipt Date: 20060629
  Transmission Date: 20120928
  Serious: Yes (Hospitalization, Other)
  Sender: FDA-Public Use
  Company Number: US-ROCHE-1093367

PATIENT
  Sex: Female

DRUGS (1)
  1. XOLAIR [Suspect]
     Indication: ASTHMA

REACTIONS (6)
  - CHRONIC OBSTRUCTIVE PULMONARY DISEASE [None]
  - ASTHMA [None]
  - LACRIMATION INCREASED [None]
  - COUGH [None]
  - BRONCHOSPASM [None]
  - RESPIRATORY TRACT CONGESTION [None]
